FAERS Safety Report 8851920 (Version 1)
Quarter: 2012Q4

REPORT INFORMATION
  Report Type: 
  Country: US (occurrence: US)
  Receive Date: 20121022
  Receipt Date: 20121022
  Transmission Date: 20130627
  Serious: No
  Sender: FDA-Public Use
  Company Number: US-BAYER-2012-100378

PATIENT
  Age: 50 Year
  Sex: Male

DRUGS (1)
  1. AVELOX [Suspect]
     Indication: BRONCHITIS
     Dosage: Daily dose 400 mg
     Route: 048
     Dates: start: 20120705, end: 20120710

REACTIONS (1)
  - Tendon pain [Not Recovered/Not Resolved]
